FAERS Safety Report 7866399-9 (Version None)
Quarter: 2011Q4

REPORT INFORMATION
  Report Type: 
  Country: None (occurrence: None)
  Receive Date: 20111028
  Receipt Date: 20110610
  Transmission Date: 20120403
  Serious: No
  Sender: FDA-Public Use
  Company Number: US-GLAXOSMITHKLINE-A0931166A

PATIENT
  Age: 63 Year
  Sex: Female

DRUGS (2)
  1. ELAVIL [Concomitant]
  2. ADVAIR DISKUS 100/50 [Suspect]
     Indication: CHRONIC OBSTRUCTIVE PULMONARY DISEASE
     Dosage: 2 PER DAY
     Route: 055
     Dates: start: 20110510

REACTIONS (1)
  - SWELLING FACE [None]
